FAERS Safety Report 14687369 (Version 4)
Quarter: 2018Q4

REPORT INFORMATION
  Report Type: Spontaneous
  Country: DE (occurrence: DE)
  Receive Date: 20180328
  Receipt Date: 20181122
  Transmission Date: 20190204
  Serious: Yes (Hospitalization)
  Sender: FDA-Public Use
  Company Number: DE-BIOGEN-2018BI00547610

PATIENT
  Age: 42 Year
  Sex: Female

DRUGS (1)
  1. ZINBRYTA [Suspect]
     Active Substance: DACLIZUMAB
     Indication: RELAPSING-REMITTING MULTIPLE SCLEROSIS
     Route: 058
     Dates: end: 201802

REACTIONS (5)
  - Vasculitis [Recovered/Resolved with Sequelae]
  - Angioedema [Recovered/Resolved]
  - Multiple sclerosis relapse [Recovered/Resolved with Sequelae]
  - Anxiety [Not Recovered/Not Resolved]
  - Acute disseminated encephalomyelitis [Recovered/Resolved with Sequelae]

NARRATIVE: CASE EVENT DATE: 201803
